FAERS Safety Report 4573601-8 (Version None)
Quarter: 2005Q1

REPORT INFORMATION
  Report Type: 
  Country: None (occurrence: None)
  Receive Date: 20050203
  Receipt Date: 20050125
  Transmission Date: 20050727
  Serious: Yes (Other)
  Sender: FDA-Public Use
  Company Number: 2005-01-1675

PATIENT
  Age: 45 Year
  Sex: Male

DRUGS (1)
  1. BETAMETHASONE SODIUM PHOSPHATE [Suspect]

REACTIONS (1)
  - LOSS OF CONSCIOUSNESS [None]
